FAERS Safety Report 12439674 (Version 3)
Quarter: 2017Q3

REPORT INFORMATION
  Report Type: Spontaneous
  Country: US (occurrence: US)
  Receive Date: 20160606
  Receipt Date: 20170724
  Transmission Date: 20171127
  Serious: Yes (Death, Other)
  Sender: FDA-Public Use
  Company Number: US-CELGENEUS-USA-2016056919

PATIENT

DRUGS (3)
  1. ABRAXANE [Suspect]
     Active Substance: PACLITAXEL
     Indication: PANCREATIC CARCINOMA METASTATIC
     Dosage: 125 MILLIGRAM/SQ. METER
     Route: 041
  2. BB608 [Suspect]
     Active Substance: NAPABUCASIN
     Indication: PANCREATIC CARCINOMA METASTATIC
     Dosage: 480 MILLIGRAM
     Route: 048
  3. GEMCITABINE [Suspect]
     Active Substance: GEMCITABINE\GEMCITABINE HYDROCHLORIDE
     Indication: PANCREATIC CARCINOMA METASTATIC
     Dosage: 1000 MILLIGRAM/SQ. METER
     Route: 065

REACTIONS (17)
  - Pancreatic carcinoma metastatic [Unknown]
  - Neuropathy peripheral [Unknown]
  - Hyponatraemia [Unknown]
  - Nausea [Unknown]
  - Neutropenia [Unknown]
  - Alopecia [Unknown]
  - Electrolyte imbalance [Unknown]
  - Hypokalaemia [Unknown]
  - Fatigue [Unknown]
  - Unevaluable event [Unknown]
  - Death [Fatal]
  - Diarrhoea [Unknown]
  - Muscle spasms [Unknown]
  - Dehydration [Unknown]
  - Abdominal pain [Unknown]
  - Treatment noncompliance [Unknown]
  - Weight decreased [Unknown]
